FAERS Safety Report 19294920 (Version 1)
Quarter: 2021Q2

REPORT INFORMATION
  Report Type: Spontaneous
  Country: ES (occurrence: ES)
  Receive Date: 20210524
  Receipt Date: 20210524
  Transmission Date: 20210717
  Serious: Yes (Other)
  Sender: FDA-Public Use
  Company Number: ES-TAKEDA-2021TEU004801

PATIENT
  Age: 86 Year
  Sex: Female

DRUGS (1)
  1. VIPDOMET [Suspect]
     Active Substance: ALOGLIPTIN BENZOATE\METFORMIN HYDROCHLORIDE
     Indication: DIABETES MELLITUS
     Dosage: 12.5/850 MILLIGRAM
     Route: 065
     Dates: start: 20210514

REACTIONS (3)
  - Dysphagia [Unknown]
  - Choking [Unknown]
  - Retching [Unknown]
